FAERS Safety Report 16984265 (Version 1)
Quarter: 2019Q4

REPORT INFORMATION
  Report Type: Spontaneous
  Country: US (occurrence: US)
  Receive Date: 20191101
  Receipt Date: 20191101
  Transmission Date: 20200122
  Serious: No
  Sender: FDA-Public Use
  Company Number: US-FARMAPROD-201906-0853

PATIENT
  Age: 73 Year
  Sex: Male

DRUGS (11)
  1. OXERVATE [Suspect]
     Active Substance: CENEGERMIN-BKBJ
     Indication: NEUROTROPHIC KERATOPATHY
     Route: 047
     Dates: start: 20190522, end: 20190717
  2. LISINOPRIL. [Concomitant]
     Active Substance: LISINOPRIL
  3. LOPRESSOR [Concomitant]
     Active Substance: METOPROLOL TARTRATE
  4. OXERVATE [Suspect]
     Active Substance: CENEGERMIN-BKBJ
     Indication: HYPOAESTHESIA EYE
  5. OCUSOFT [Concomitant]
  6. THERATEARS [Concomitant]
     Active Substance: CARBOXYMETHYLCELLULOSE SODIUM
  7. GLIMEPIRIDE. [Concomitant]
     Active Substance: GLIMEPIRIDE
  8. LEVOTHYROXINE SODIUM. [Concomitant]
     Active Substance: LEVOTHYROXINE SODIUM
  9. TRIAMTERENE AND HYDROCHLOROTHIAZIDE [Concomitant]
     Active Substance: HYDROCHLOROTHIAZIDE\TRIAMTERENE
  10. TIMOLOL MALEATE. [Concomitant]
     Active Substance: TIMOLOL MALEATE
  11. MURO-128 [Concomitant]

REACTIONS (3)
  - Visual impairment [Unknown]
  - Vision blurred [Not Recovered/Not Resolved]
  - Eye pain [Recovered/Resolved]

NARRATIVE: CASE EVENT DATE: 20190826
